FAERS Safety Report 5421703-6 (Version None)
Quarter: 2007Q3

REPORT INFORMATION
  Report Type: 
  Country: None (occurrence: None)
  Receive Date: 20070817
  Receipt Date: 20070813
  Transmission Date: 20080115
  Serious: Yes (Life-Threatening, Other)
  Sender: FDA-Public Use
  Company Number: 200612AGG00529

PATIENT
  Age: 79 Year
  Sex: Male

DRUGS (3)
  1. AGGRASTAT [Suspect]
     Indication: ACUTE MYOCARDIAL INFARCTION
     Dosage: (144000 MCG 1X/24 HOURS 144,000 MCG DAILY IV INTRAVENOUS)
     Route: 042
     Dates: start: 20060622, end: 20060623
  2. ASPIRIN [Concomitant]
  3. HEPARIN [Concomitant]

REACTIONS (7)
  - ANGINA PECTORIS [None]
  - BLOOD PRESSURE DECREASED [None]
  - HAEMATOMA [None]
  - HAEMOGLOBIN DECREASED [None]
  - HAEMORRHAGE [None]
  - LEFT VENTRICULAR FAILURE [None]
  - THROMBOCYTOPENIA [None]
